FAERS Safety Report 7678184 (Version 4)
Quarter: 2014Q1

REPORT INFORMATION
  Report Type: Spontaneous
  Country: US (occurrence: US)
  Receive Date: 20101122
  Receipt Date: 20140204
  Transmission Date: 20141002
  Serious: Yes (Life-Threatening, Hospitalization)
  Sender: FDA-Public Use
  Company Number: US-BAYER-201041865NA

PATIENT
  Age: 27 Year
  Sex: Female
  Weight: 64 kg

DRUGS (3)
  1. YASMIN [Suspect]
     Dosage: UNK
     Dates: start: 2005, end: 20090617
  2. OCELLA [Suspect]
     Dosage: UNK
     Dates: start: 2005, end: 20090617
  3. PROVENTIL [Concomitant]

REACTIONS (2)
  - Gallbladder injury [None]
  - Cholecystitis acute [None]
